FAERS Safety Report 13654011 (Version 3)
Quarter: 2017Q3

REPORT INFORMATION
  Report Type: Spontaneous
  Country: FR (occurrence: FR)
  Receive Date: 20170614
  Receipt Date: 20170710
  Transmission Date: 20171127
  Serious: Yes (Hospitalization, Other)
  Sender: FDA-Public Use
  Company Number: FR-EXELIXIS-CABO-17009432

PATIENT
  Age: 69 Year
  Sex: Male
  Weight: 78 kg

DRUGS (16)
  1. OXYNORMORO [Concomitant]
     Active Substance: OXYCODONE
  2. OXYCONTIN [Concomitant]
     Active Substance: OXYCODONE HYDROCHLORIDE
  3. CORTANCYL [Concomitant]
     Active Substance: PREDNISONE
  4. RAMIPRIL. [Concomitant]
     Active Substance: RAMIPRIL
  5. XATRAL [Concomitant]
     Active Substance: ALFUZOSIN
  6. KARDEGIC [Suspect]
     Active Substance: ASPIRIN LYSINE
     Indication: PRODUCT USED FOR UNKNOWN INDICATION
     Dosage: 160 MG, QD
     Route: 048
  7. LOVENOX [Suspect]
     Active Substance: ENOXAPARIN SODIUM
     Indication: PRODUCT USED FOR UNKNOWN INDICATION
     Dosage: 4000 IU, QD
     Route: 058
  8. VERSATIS [Concomitant]
     Active Substance: LIDOCAINE
  9. NOVORAPID [Concomitant]
     Active Substance: INSULIN ASPART
  10. AMLOR [Concomitant]
     Active Substance: AMLODIPINE BESYLATE
  11. LEVOTHYROX [Concomitant]
     Active Substance: LEVOTHYROXINE
  12. CABOMETYX [Suspect]
     Active Substance: CABOZANTINIB S-MALATE
     Indication: RENAL CANCER
     Dosage: 40 MG, QD
     Route: 048
     Dates: start: 20170420, end: 20170521
  13. PRIMPERAN [Concomitant]
     Active Substance: METOCLOPRAMIDE HYDROCHLORIDE
  14. LANTUS [Concomitant]
     Active Substance: INSULIN GLARGINE
  15. LYRICA [Concomitant]
     Active Substance: PREGABALIN
  16. TRANSIPEG [Concomitant]
     Active Substance: POLYETHYLENE GLYCOL 3350

REACTIONS (8)
  - Diverticulitis [Not Recovered/Not Resolved]
  - Delusional disorder, persecutory type [Unknown]
  - Urinary retention [Not Recovered/Not Resolved]
  - Carotid artery stenosis [Unknown]
  - Sepsis [Not Recovered/Not Resolved]
  - Lower gastrointestinal perforation [Not Recovered/Not Resolved]
  - Peritonitis bacterial [Not Recovered/Not Resolved]
  - Ischaemic stroke [Recovering/Resolving]

NARRATIVE: CASE EVENT DATE: 201705
